FAERS Safety Report 5446407-5 (Version None)
Quarter: 2007Q3

REPORT INFORMATION
  Report Type: 
  Country: None (occurrence: None)
  Receive Date: 20070907
  Receipt Date: 20070830
  Transmission Date: 20080115
  Serious: Yes (Hospitalization)
  Sender: FDA-Public Use
  Company Number: US-ROCHE-514705

PATIENT
  Age: 33 Year
  Sex: Female
  Weight: 113.9 kg

DRUGS (4)
  1. PEG-INTERFERON A-2A (RO 25-8310) [Suspect]
     Route: 058
     Dates: start: 20060615, end: 20070510
  2. RIBAVIRIN [Suspect]
     Route: 048
     Dates: start: 20060616, end: 20070515
  3. SYNTHROID [Concomitant]
     Dates: start: 20060603
  4. ADVIL LIQUI-GELS [Concomitant]
     Dates: start: 20060101

REACTIONS (5)
  - ACINETOBACTER INFECTION [None]
  - ARTHROPOD BITE [None]
  - CELLULITIS [None]
  - CULTURE WOUND POSITIVE [None]
  - PNEUMONIA [None]
